FAERS Safety Report 5811089-7 (Version None)
Quarter: 2008Q3

REPORT INFORMATION
  Report Type: 
  Country: None (occurrence: None)
  Receive Date: 20080710
  Receipt Date: 20080701
  Transmission Date: 20090109
  Serious: Yes (Death, Life-Threatening, Hospitalization)
  Sender: FDA-Public Use
  Company Number: 2007-02096

PATIENT
  Age: 63 Year
  Sex: Male
  Weight: 62 kg

DRUGS (14)
  1. VELCADE [Suspect]
     Indication: MULTIPLE MYELOMA
     Dosage: 2.10 MG, INTRAVENOUS
     Route: 042
     Dates: start: 20070523, end: 20070614
  2. VALSARTAN [Concomitant]
  3. ASPIRIN [Concomitant]
  4. SULFAMETHOXAZOLE AND TRIMETHOPRIM [Concomitant]
  5. AMLODIPINE BESYLATE [Concomitant]
  6. FAMOTIDINE [Concomitant]
  7. ERYTHROCIN (ERYTHROMYCIN) [Concomitant]
  8. FOSAMAX [Concomitant]
  9. MAGNESIUM OXIDE (MAGNESIUM OXIDE) [Concomitant]
  10. VALTREX [Concomitant]
  11. PYRINAZIN (PARACETAMOL) [Concomitant]
  12. LOXONIN (LOXOPROFEN SODIUM) [Concomitant]
  13. PROCAINE BENZYLPENICILLIN (BENZYPENICILLIN PROCAINE) [Concomitant]
  14. NEUTROGEN [Concomitant]

REACTIONS (4)
  - DISEASE PROGRESSION [None]
  - NEUTROPENIA [None]
  - PHARYNGITIS [None]
  - PNEUMONIA BACTERIAL [None]
